FAERS Safety Report 5446185-X (Version None)
Quarter: 2007Q3

REPORT INFORMATION
  Report Type: 
  Country: None (occurrence: None)
  Receive Date: 20070731
  Receipt Date: 20061122
  Transmission Date: 20080115
  Serious: Yes (Other)
  Sender: FDA-Public Use
  Company Number: US-2006-036828

PATIENT
  Age: 51 Year
  Sex: Female

DRUGS (2)
  1. MAGNEVIST [Suspect]
     Indication: NUCLEAR MAGNETIC RESONANCE IMAGING
     Dosage: 12 ML, 1 DOSE, INTRAVENOUS
     Route: 042
     Dates: start: 20061120, end: 20061120
  2. VALIUM [Concomitant]

REACTIONS (4)
  - ASTHENIA [None]
  - BURNING SENSATION [None]
  - DIZZINESS [None]
  - HYPOAESTHESIA [None]
